FAERS Safety Report 5079735-6 (Version None)
Quarter: 2006Q3

REPORT INFORMATION
  Report Type: 
  Country: None (occurrence: None)
  Receive Date: 20060815
  Receipt Date: 20050914
  Transmission Date: 20061208
  Serious: No
  Sender: FDA-Public Use
  Company Number: US-GLAXOSMITHKLINE-A0574212A

PATIENT

DRUGS (1)
  1. TAGAMET HB 200 [Suspect]

REACTIONS (3)
  - DISTURBANCE IN ATTENTION [None]
  - SLEEP DISORDER [None]
  - SOMNOLENCE [None]
